FAERS Safety Report 5059532-8 (Version None)
Quarter: 2006Q3

REPORT INFORMATION
  Report Type: 
  Country: None (occurrence: None)
  Receive Date: 20060724
  Receipt Date: 20060712
  Transmission Date: 20061208
  Serious: Yes (Other)
  Sender: FDA-Public Use
  Company Number: PHNU2006DE02516

PATIENT
  Sex: Female

DRUGS (1)
  1. ZOMETA [Suspect]
     Dosage: 4 MG, QMO
     Dates: start: 20050201, end: 20060301

REACTIONS (2)
  - DENTAL DISCOMFORT [None]
  - OSTEONECROSIS [None]
